FAERS Safety Report 7350901-X (Version None)
Quarter: 2011Q1

REPORT INFORMATION
  Report Type: 
  Country: None (occurrence: None)
  Receive Date: 20110314
  Receipt Date: 20110309
  Transmission Date: 20110831
  Serious: Yes (Other)
  Sender: FDA-Public Use
  Company Number: US-PFIZER INC-2011052774

PATIENT
  Sex: Male

DRUGS (2)
  1. ADVIL CONGESTION RELIEF [Suspect]
     Indication: LOWER RESPIRATORY TRACT INFECTION
     Dosage: 200/10
     Route: 048
     Dates: start: 20110308, end: 20110308
  2. LISINOPRIL [Concomitant]
     Indication: HYPERTENSION
     Dosage: 25 MG, 1X/DAY
     Route: 048

REACTIONS (2)
  - FEELING ABNORMAL [None]
  - HALLUCINATION [None]
